FAERS Safety Report 16209688 (Version 1)
Quarter: 2019Q2

REPORT INFORMATION
  Report Type: Spontaneous
  Country: US (occurrence: US)
  Receive Date: 20190417
  Receipt Date: 20190417
  Transmission Date: 20190711
  Serious: Yes (Death, Hospitalization)
  Sender: FDA-Public Use
  Company Number: US-MTPC-MTDA2019-0046156

PATIENT

DRUGS (2)
  1. RADICAVA [Suspect]
     Active Substance: EDARAVONE
     Indication: AMYOTROPHIC LATERAL SCLEROSIS
     Dosage: 60 MILLIGRAM, QD OVER 60 MINS FOR 14 DAYS
     Route: 042
     Dates: start: 201711
  2. RADICAVA [Suspect]
     Active Substance: EDARAVONE
     Dosage: 60 MILLIGRAM,QD FOR 10 OUT OF 14 DAYS DOSING
     Route: 042
     Dates: end: 201903

REACTIONS (2)
  - Pneumonia [Fatal]
  - Disease progression [Unknown]
